FAERS Safety Report 8541245-9 (Version None)
Quarter: 2012Q3

REPORT INFORMATION
  Report Type: 
  Country: None (occurrence: None)
  Receive Date: 20120726
  Receipt Date: 20120716
  Transmission Date: 20120928
  Serious: Yes (Hospitalization)
  Sender: FDA-Public Use
  Company Number: US-ELI_LILLY_AND_COMPANY-US201206004739

PATIENT
  Sex: Female
  Weight: 54.422 kg

DRUGS (1)
  1. FORTEO [Suspect]
     Dosage: 20 U, QD
     Route: 065
     Dates: start: 20120323

REACTIONS (1)
  - ARTHRITIS INFECTIVE [None]
